FAERS Safety Report 6252370-X (Version None)
Quarter: 2009Q3

REPORT INFORMATION
  Report Type: 
  Country: None (occurrence: None)
  Receive Date: 20090701
  Receipt Date: 20090612
  Transmission Date: 20100115
  Serious: Yes (Death, Hospitalization)
  Sender: FDA-Public Use
  Company Number: BR-PFIZER INC-2009204109

PATIENT
  Age: 42 Year

DRUGS (4)
  1. MARAVIROC [Suspect]
     Dosage: 150 MG, 2X/DAY
     Route: 048
     Dates: start: 20080306, end: 20090328
  2. KALETRA [Concomitant]
     Dosage: UNK
     Route: 048
     Dates: start: 20080306, end: 20090328
  3. ATAZANAVIR [Concomitant]
     Dosage: UNK
     Route: 048
     Dates: start: 20070610, end: 20090328
  4. AMLODIPINE [Concomitant]
     Dosage: UNK
     Route: 048
     Dates: start: 20070701

REACTIONS (2)
  - DYSPNOEA [None]
  - HODGKIN'S DISEASE [None]
